FAERS Safety Report 8851447 (Version 1)
Quarter: 2012Q4

REPORT INFORMATION
  Report Type: 
  Country: US (occurrence: US)
  Receive Date: 20121022
  Receipt Date: 20121022
  Transmission Date: 20130627
  Serious: Yes (Hospitalization)
  Sender: FDA-Public Use
  Company Number: US-009507513-1210USA008019

PATIENT
  Sex: Male

DRUGS (1)
  1. CRIXIVAN [Suspect]
     Dosage: 800 mg, q8h
     Route: 048

REACTIONS (2)
  - Osteomyelitis [Not Recovered/Not Resolved]
  - Physical product label issue [Unknown]
